FAERS Safety Report 24763629 (Version 1)
Quarter: 2024Q4

REPORT INFORMATION
  Report Type: Report from Study
  Country: CA (occurrence: CA)
  Receive Date: 20241223
  Receipt Date: 20241223
  Transmission Date: 20250115
  Serious: Yes (Hospitalization)
  Sender: ABBVIE
  Company Number: CA-ABBVIE-6053753

PATIENT
  Age: 67 Year
  Sex: Female

DRUGS (1)
  1. VENCLEXTA [Suspect]
     Active Substance: VENETOCLAX
     Indication: Chronic lymphocytic leukaemia
     Dosage: FORM STRENGTH: 10 MG?STARTER DOSE: 20 MG DAILY FOR 7 DAYS?LAST ADMIN DATE: DEC 2024
     Route: 048
     Dates: start: 20241210

REACTIONS (2)
  - Cardiac failure [Unknown]
  - Pneumonia [Unknown]

NARRATIVE: CASE EVENT DATE: 20241201
